FAERS Safety Report 4954564-X (Version None)
Quarter: 2006Q1

REPORT INFORMATION
  Report Type: 
  Country: None (occurrence: None)
  Receive Date: 20060322
  Receipt Date: 20060306
  Transmission Date: 20060701
  Serious: Yes (Other)
  Sender: FDA-Public Use
  Company Number: 2006BL001190

PATIENT
  Age: 18 Year
  Sex: Male
  Weight: 67.3 kg

DRUGS (2)
  1. PREDNI-OPHTAL GEL (PREDNISOLONE ACETATE) [Suspect]
     Indication: UVEITIS
     Dosage: OPHTHALMIC
     Route: 047
     Dates: start: 20020101
  2. ACETAZOLAMIDE [Concomitant]

REACTIONS (1)
  - CUSHING'S SYNDROME [None]
